FAERS Safety Report 20718416 (Version 3)
Quarter: 2023Q1

REPORT INFORMATION
  Report Type: Spontaneous
  Country: PK (occurrence: PK)
  Receive Date: 20220418
  Receipt Date: 20230118
  Transmission Date: 20230417
  Serious: Yes (Other)
  Sender: FDA-Public Use
  Company Number: PK-PFIZER INC-202200543599

PATIENT
  Age: 53 Year
  Sex: Male

DRUGS (16)
  1. ENBREL [Suspect]
     Active Substance: ETANERCEPT
     Indication: Ankylosing spondylitis
     Dosage: 50 MG, WEEKLY
     Route: 058
     Dates: start: 20211004
  2. ENBREL [Suspect]
     Active Substance: ETANERCEPT
     Indication: Osteoarthritis
     Dosage: 50 MG, EVERY TWO WEEKS
     Route: 058
     Dates: start: 20211010
  3. NUBEROL [Concomitant]
     Dosage: IN EVENING AFTER MEAL
  4. NEXIUM [Concomitant]
     Active Substance: ESOMEPRAZOLE MAGNESIUM
     Dosage: 1 DF, 1X/DAY BEFORE MEAL
  5. PANADOL [Concomitant]
     Active Substance: ACETAMINOPHEN
     Dosage: 2 DF, AS NEEDED (ONCE A DAY, AFTER MEAL, WHEN REQUIRED)
  6. LACOLEP [Concomitant]
     Dosage: 0+0+1+0
  7. LACOLEP [Concomitant]
     Dosage: 1 DF (0+0+0+1 AT NIGHT)
  8. METHYLCOBALAMIN [Concomitant]
     Active Substance: METHYLCOBALAMIN
     Dosage: 0+0+1+0
  9. METHYLCOBALAMIN [Concomitant]
     Active Substance: METHYLCOBALAMIN
     Dosage: 1 DF (0+0+1+0, IN EVENING)
  10. FOLIC ACID [Concomitant]
     Active Substance: FOLIC ACID
     Dosage: 1 DF, 2X/WEEK MON, TUE
  11. SUNNY D [Concomitant]
     Dosage: 1 DF, MONTHLY (ONCE A MONTH
  12. TREVIAMET [Concomitant]
     Dosage: UNK
  13. ROVISTA [Concomitant]
     Dosage: UNK
  14. INSULIN NOS [Concomitant]
     Active Substance: INSULIN NOS
     Dosage: UNK
  15. ASPIRIN\CLOPIDOGREL BISULFATE [Concomitant]
     Active Substance: ASPIRIN\CLOPIDOGREL BISULFATE
     Dosage: UNK
  16. CYMBALTA [Concomitant]
     Active Substance: DULOXETINE HYDROCHLORIDE
     Dosage: UNK

REACTIONS (9)
  - Sacroiliitis [Recovering/Resolving]
  - Pain in extremity [Recovering/Resolving]
  - Hypokinesia [Recovering/Resolving]
  - Intermittent claudication [Recovering/Resolving]
  - Pulse abnormal [Recovering/Resolving]
  - Pain [Unknown]
  - Fatigue [Unknown]
  - Heart rate increased [Unknown]
  - Off label use [Unknown]

NARRATIVE: CASE EVENT DATE: 20211010
